FAERS Safety Report 16667271 (Version 5)
Quarter: 2019Q4

REPORT INFORMATION
  Report Type: Report from Study
  Country: US (occurrence: US)
  Receive Date: 20190805
  Receipt Date: 20191011
  Transmission Date: 20200122
  Serious: Yes (Death, Other)
  Sender: FDA-Public Use
  Company Number: US-JNJFOC-20190802046

PATIENT
  Sex: Male

DRUGS (11)
  1. DUONEB [Concomitant]
     Active Substance: ALBUTEROL SULFATE\IPRATROPIUM BROMIDE
  2. CARDURA [Concomitant]
     Active Substance: DOXAZOSIN MESYLATE
  3. ZANTAC [Concomitant]
     Active Substance: RANITIDINE HYDROCHLORIDE
  4. ALDACTONE [Concomitant]
     Active Substance: SPIRONOLACTONE
  5. VITAMIN B12 [Concomitant]
     Active Substance: CYANOCOBALAMIN
  6. PRESERVISION AREDS [Concomitant]
     Active Substance: MINERALS\VITAMINS
  7. LASIX [Concomitant]
     Active Substance: FUROSEMIDE
  8. IBRUTINIB [Suspect]
     Active Substance: IBRUTINIB
     Dosage: UNK
     Route: 048
  9. PROSCAR [Concomitant]
     Active Substance: FINASTERIDE
  10. VITAMIN D3 [Concomitant]
     Active Substance: CHOLECALCIFEROL
  11. IBRUTINIB [Suspect]
     Active Substance: IBRUTINIB
     Indication: MANTLE CELL LYMPHOMA
     Dosage: UNK
     Route: 065

REACTIONS (6)
  - Death [Fatal]
  - Pulmonary oedema [Unknown]
  - Off label use [Unknown]
  - Wrong technique in product usage process [Unknown]
  - Incorrect dose administered [Unknown]
  - Product use issue [Unknown]
